FAERS Safety Report 5012033-5 (Version None)
Quarter: 2006Q2

REPORT INFORMATION
  Report Type: 
  Country: None (occurrence: None)
  Receive Date: 20060526
  Receipt Date: 20060518
  Transmission Date: 20061013
  Serious: Yes (Death, Hospitalization, Other)
  Sender: FDA-Public Use
  Company Number: US-GLAXOSMITHKLINE-A0606191A

PATIENT
  Age: 36 Year
  Sex: Female

DRUGS (23)
  1. CHLORPROMAZINE [Suspect]
     Indication: ABNORMAL BEHAVIOUR
     Dosage: 200MG THREE TIMES PER DAY
     Route: 048
  2. ATENOLOL [Concomitant]
  3. TEGRETOL [Concomitant]
  4. COLACE [Concomitant]
  5. LAMICTAL [Concomitant]
  6. FERROUS SULFATE TAB [Concomitant]
  7. FAMOTIDINE [Concomitant]
  8. HALDOL [Concomitant]
  9. FLONASE [Concomitant]
  10. LEVOTHYROXINE SODIUM [Concomitant]
  11. HYZAAR [Concomitant]
  12. NORVASC [Concomitant]
  13. PREDNISONE TAB [Concomitant]
  14. RENAGEL [Concomitant]
  15. PROCRIT [Concomitant]
  16. TRAMADOL HCL [Concomitant]
  17. SODIUM BICARBONATE [Concomitant]
  18. DEMULEN 1/35-21 [Concomitant]
  19. BUTALBITAL/APAP [Concomitant]
  20. TOPICAL CLEOCIN [Concomitant]
  21. SARNA LOTION [Concomitant]
  22. CETAPHIL [Concomitant]
  23. ACETAMINOPHEN [Concomitant]

REACTIONS (1)
  - PNEUMONIA [None]
